FAERS Safety Report 9772215 (Version 1)
Quarter: 2013Q4

REPORT INFORMATION
  Report Type: Spontaneous
  Country: US (occurrence: None)
  Receive Date: 20131218
  Receipt Date: 20131218
  Transmission Date: 20140711
  Serious: Yes (Other)
  Sender: FDA-Public Use
  Company Number: None

PATIENT
  Age: 65 Year
  Sex: Female

DRUGS (1)
  1. HIZENTRA [Suspect]
     Indication: HYPOGAMMAGLOBULINAEMIA
     Dosage: 10 GRAMS, EVERY FOUR WEEKS, INTRAVENOUS
     Route: 042
     Dates: start: 20131213

REACTIONS (2)
  - Product deposit [None]
  - Product quality issue [None]
